FAERS Safety Report 6866178-5 (Version None)
Quarter: 2010Q3

REPORT INFORMATION
  Report Type: 
  Country: None (occurrence: None)
  Receive Date: 20100722
  Receipt Date: 20100715
  Transmission Date: 20110219
  Serious: Yes (Hospitalization)
  Sender: FDA-Public Use
  Company Number: FR-JNJFOC-20100705210

PATIENT
  Age: 76 Year
  Sex: Male

DRUGS (4)
  1. TAVANIC [Suspect]
     Indication: BRONCHITIS
     Route: 048
  2. PHOLCODINE [Suspect]
     Indication: PRODUCT USED FOR UNKNOWN INDICATION
     Route: 065
  3. THIOVALONE [Suspect]
     Indication: PRODUCT USED FOR UNKNOWN INDICATION
     Route: 065
  4. CORTANCYL [Suspect]
     Indication: PRODUCT USED FOR UNKNOWN INDICATION
     Route: 065

REACTIONS (2)
  - ECZEMA [None]
  - PHOTOSENSITIVITY REACTION [None]
